FAERS Safety Report 4512645-9 (Version None)
Quarter: 2004Q4

REPORT INFORMATION
  Report Type: 
  Country: None (occurrence: None)
  Receive Date: 20041124
  Receipt Date: 20041116
  Transmission Date: 20050328
  Serious: Yes (Other)
  Sender: FDA-Public Use
  Company Number: 163-20785-04070640

PATIENT
  Age: 75 Year
  Sex: Male

DRUGS (1)
  1. THALOMID [Suspect]
     Indication: MULTIPLE MYELOMA
     Dosage: 400 MG, QD. ORAL
     Route: 048
     Dates: start: 20040525, end: 20040801

REACTIONS (10)
  - ARTHRALGIA [None]
  - BRADYCARDIA [None]
  - DIZZINESS [None]
  - DRY MOUTH [None]
  - HALLUCINATION [None]
  - HYPOAESTHESIA [None]
  - NEUROPATHY PERIPHERAL [None]
  - PYREXIA [None]
  - TEARFULNESS [None]
  - TREMOR [None]
